FAERS Safety Report 6982352-1 (Version None)
Quarter: 2010Q3

REPORT INFORMATION
  Report Type: 
  Country: None (occurrence: None)
  Receive Date: 20100914
  Receipt Date: 20100113
  Transmission Date: 20110219
  Serious: No
  Sender: FDA-Public Use
  Company Number: US-PFIZER INC-2010005966

PATIENT
  Sex: Female

DRUGS (8)
  1. LYRICA [Suspect]
     Indication: SARCOIDOSIS
     Dosage: 75 MG, 2X/DAY
     Route: 048
     Dates: start: 20100104
  2. LYRICA [Suspect]
     Indication: NEUROPATHY PERIPHERAL
  3. LYRICA [Suspect]
     Indication: FIBROMYALGIA
  4. METHOTREXATE SODIUM [Concomitant]
     Indication: CHEMOTHERAPY
     Dosage: 15 MG, WEEKLY
  5. NEXIUM [Concomitant]
     Indication: GASTRIC DISORDER
     Dosage: 40 MG, 1X/DAY
     Route: 048
  6. LISINOPRIL [Concomitant]
     Indication: HYPERTENSION
     Dosage: 20 MG, 1X/DAY
     Route: 048
  7. PERCOCET [Concomitant]
     Indication: PAIN
     Dosage: 10 MG, UP TO 4X/DAY
     Route: 048
  8. FOLIC ACID [Concomitant]
     Indication: CHEMOTHERAPY
     Route: 048

REACTIONS (4)
  - CHEST DISCOMFORT [None]
  - FEELING DRUNK [None]
  - SOMNOLENCE [None]
  - VISION BLURRED [None]
